FAERS Safety Report 4531588-8 (Version None)
Quarter: 2004Q4

REPORT INFORMATION
  Report Type: 
  Country: None (occurrence: None)
  Receive Date: 20041217
  Receipt Date: 20041202
  Transmission Date: 20050328
  Serious: Yes (Death, Hospitalization)
  Sender: FDA-Public Use
  Company Number: DL20041197

PATIENT
  Age: 22 Year
  Sex: Female

DRUGS (2)
  1. MIFEPRISTONE TABLETS, 200 MG (DANCO LABS) [Suspect]
     Indication: ABORTION INDUCED
     Dosage: 200 MG, ORAL
     Route: 048
     Dates: start: 20040108
  2. MISOPROSTOL [Suspect]
     Dosage: 800 MCG , VAGINAL
     Route: 067
     Dates: start: 20040109

REACTIONS (14)
  - ABDOMINAL PAIN [None]
  - ABORTION INFECTED [None]
  - ABSCESS [None]
  - CARDIO-RESPIRATORY ARREST [None]
  - ENDOMETRITIS [None]
  - GENERALISED OEDEMA [None]
  - HAEMATOMA [None]
  - MYOCARDITIS [None]
  - NECROSIS [None]
  - PNEUMONIA [None]
  - PREGNANCY TEST POSITIVE [None]
  - PULSE ABSENT [None]
  - RETROPERITONEAL OEDEMA [None]
  - RUPTURED ECTOPIC PREGNANCY [None]
